FAERS Safety Report 5084188-8 (Version None)
Quarter: 2006Q3

REPORT INFORMATION
  Report Type: 
  Country: None (occurrence: None)
  Receive Date: 20060821
  Receipt Date: 20050708
  Transmission Date: 20061208
  Serious: No
  Sender: FDA-Public Use
  Company Number: US-BRISTOL-MYERS SQUIBB COMPANY-13030317

PATIENT
  Age: 50 Year
  Sex: Female
  Weight: 54 kg

DRUGS (4)
  1. TEQUIN [Suspect]
     Indication: SINUSITIS
     Dates: start: 20041223, end: 20050101
  2. PREDNISONE [Concomitant]
  3. NASAL SPRAY [Concomitant]
  4. PREVACID [Concomitant]

REACTIONS (2)
  - ARTHRALGIA [None]
  - FATIGUE [None]
